FAERS Safety Report 24923086 (Version 1)
Quarter: 2025Q1

REPORT INFORMATION
  Report Type: Spontaneous
  Country: KE (occurrence: KE)
  Receive Date: 20250204
  Receipt Date: 20250204
  Transmission Date: 20250409
  Serious: Yes (Life-Threatening, Hospitalization, Other)
  Sender: ANI
  Company Number: KE-ANIPHARMA-2025-KE-000002

PATIENT
  Sex: Male
  Weight: 62 kg

DRUGS (5)
  1. CASODEX [Suspect]
     Active Substance: BICALUTAMIDE
     Indication: Prostate cancer
  2. GOSERELIN [Suspect]
     Active Substance: GOSERELIN
  3. DEVICE [Suspect]
     Active Substance: DEVICE
  4. ABIRATERONE [Concomitant]
     Active Substance: ABIRATERONE
  5. DOCETAXEL [Concomitant]
     Active Substance: DOCETAXEL

REACTIONS (2)
  - Cardiomyopathy [Recovering/Resolving]
  - Cardiac failure [Recovering/Resolving]
